FAERS Safety Report 5202240-0 (Version None)
Quarter: 2007Q1

REPORT INFORMATION
  Report Type: 
  Country: None (occurrence: None)
  Receive Date: 20070109
  Receipt Date: 20070103
  Transmission Date: 20070707
  Serious: Yes (Hospitalization, Disabling)
  Sender: FDA-Public Use
  Company Number: TH-JNJFOC-20061205712

PATIENT
  Age: 19 Year
  Sex: Female

DRUGS (4)
  1. TOPAMAX [Suspect]
     Indication: CONVULSION
  2. CLONAZEPAM [Concomitant]
     Indication: CONVULSION
  3. PHENYTOIN SODIUM CAP [Concomitant]
     Indication: CONVULSION
  4. BACLOFEN [Concomitant]
     Indication: MUSCLE SPASTICITY

REACTIONS (2)
  - ANGLE CLOSURE GLAUCOMA [None]
  - CATARACT [None]
